FAERS Safety Report 11564081 (Version 1)
Quarter: 2015Q3

REPORT INFORMATION
  Report Type: Spontaneous
  Country: US (occurrence: US)
  Receive Date: 20150916
  Receipt Date: 20150916
  Transmission Date: 20151125
  Serious: No
  Sender: FDA-Public Use
  Company Number: US-ELI_LILLY_AND_COMPANY-US200902007852

PATIENT
  Age: 80 Year
  Sex: Female

DRUGS (10)
  1. NORVASC [Concomitant]
     Active Substance: AMLODIPINE BESYLATE
  2. DARVOCET [Concomitant]
     Active Substance: ACETAMINOPHEN\PROPOXYPHENE HYDROCHLORIDE
  3. FORTEO [Suspect]
     Active Substance: TERIPARATIDE
     Dosage: UNK, UNK
     Dates: start: 200812, end: 200901
  4. GLUCOTROL [Concomitant]
     Active Substance: GLIPIZIDE
  5. AMOXICILLIN. [Concomitant]
     Active Substance: AMOXICILLIN
  6. VITAMIN D [Concomitant]
     Active Substance: CHOLECALCIFEROL
  7. LOPRESSOR [Concomitant]
     Active Substance: METOPROLOL TARTRATE
  8. CALTRATE [Concomitant]
     Active Substance: CALCIUM CARBONATE
  9. VITAMIN C [Concomitant]
     Active Substance: ASCORBIC ACID
  10. ERYTHROMYCIN. [Concomitant]
     Active Substance: ERYTHROMYCIN

REACTIONS (1)
  - Helicobacter infection [Recovering/Resolving]

NARRATIVE: CASE EVENT DATE: 200901
